FAERS Safety Report 8463546-5 (Version None)
Quarter: 2012Q2

REPORT INFORMATION
  Report Type: 
  Country: None (occurrence: None)
  Receive Date: 20120625
  Receipt Date: 20120614
  Transmission Date: 20120825
  Serious: Yes (Other)
  Sender: FDA-Public Use
  Company Number: CA-JNJFOC-20120603463

PATIENT
  Sex: Female
  Weight: 82 kg

DRUGS (9)
  1. REMICADE [Suspect]
     Indication: COLITIS ULCERATIVE
     Route: 042
  2. PREGVIT [Concomitant]
     Route: 048
     Dates: start: 20111019
  3. IMURAN [Suspect]
     Indication: PRODUCT USED FOR UNKNOWN INDICATION
     Route: 048
     Dates: start: 20110207
  4. EXTRA STRENGTH TYLENOL [Suspect]
     Indication: PRODUCT USED FOR UNKNOWN INDICATION
     Route: 048
  5. PREDNISONE TAB [Suspect]
     Indication: COLITIS ULCERATIVE
     Route: 048
     Dates: start: 20111024
  6. VITAMIN D [Concomitant]
     Route: 048
     Dates: start: 20110201
  7. CALCIUM [Concomitant]
     Route: 048
     Dates: start: 20110201
  8. FERROUS GLUCONATE [Concomitant]
     Route: 048
     Dates: start: 20111001
  9. EXTRA STRENGTH TYLENOL [Suspect]
     Route: 048

REACTIONS (3)
  - PREMATURE LABOUR [None]
  - MATERNAL EXPOSURE DURING PREGNANCY [None]
  - PREMATURE DELIVERY [None]
